FAERS Safety Report 26191784 (Version 1)
Quarter: 2025Q4

REPORT INFORMATION
  Report Type: Report from Study
  Country: US (occurrence: US)
  Receive Date: 20251223
  Receipt Date: 20251223
  Transmission Date: 20260117
  Serious: Yes (Other)
  Sender: pharmaAND
  Company Number: US-Pharmaand-2025001119

PATIENT
  Sex: Female

DRUGS (1)
  1. RUBRACA [Suspect]
     Active Substance: RUCAPARIB CAMSYLATE
     Indication: Vaginal cancer
     Dosage: 300 MG TWICE DAILY
     Route: 048
     Dates: start: 20251023, end: 202512

REACTIONS (3)
  - Hyperthyroidism [Recovering/Resolving]
  - Off label use [Recovered/Resolved]
  - Product dose omission in error [Recovered/Resolved]
